FAERS Safety Report 7974055-1 (Version None)
Quarter: 2011Q4

REPORT INFORMATION
  Report Type: 
  Country: None (occurrence: None)
  Receive Date: 20111213
  Receipt Date: 20111206
  Transmission Date: 20120403
  Serious: Yes (Hospitalization)
  Sender: FDA-Public Use
  Company Number: US-GLAXOSMITHKLINE-B0768619A

PATIENT
  Age: 32 Year
  Sex: Female

DRUGS (10)
  1. DEXLANSOPRAZOLE [Concomitant]
  2. FLOVENT [Concomitant]
  3. LOVENOX [Concomitant]
  4. EPOPROSTENOL SODIUM [Suspect]
  5. LETAIRIS [Suspect]
     Indication: PULMONARY HYPERTENSION
     Route: 048
     Dates: start: 20110817
  6. NUCYNTA [Concomitant]
  7. CLARITIN [Concomitant]
  8. NASONEX [Concomitant]
  9. KLONOPIN [Concomitant]
  10. COENZYME Q10 [Concomitant]

REACTIONS (3)
  - NAUSEA [None]
  - DIARRHOEA [None]
  - NASAL SEPTAL OPERATION [None]
